FAERS Safety Report 4529323-2 (Version None)
Quarter: 2004Q4

REPORT INFORMATION
  Report Type: 
  Country: None (occurrence: None)
  Receive Date: 20041214
  Receipt Date: 20041206
  Transmission Date: 20050328
  Serious: Yes (Hospitalization, Disabling)
  Sender: FDA-Public Use
  Company Number: 2004097162

PATIENT
  Age: 47 Year
  Sex: Male
  Weight: 78 kg

DRUGS (2)
  1. TAHOR (ATORVASTATIN) [Suspect]
     Indication: TYPE IIA HYPERLIPIDAEMIA
     Dosage: 80 MG (80 MG, 1 IN 1 D), ORAL
     Route: 048
     Dates: start: 20040302, end: 20040617
  2. PERINDOPRIL (PERINDOPRIL) [Suspect]
     Indication: HYPERTENSION
     Dosage: 2 MG (2 MG, 1 IN 1 D), ORAL
     Route: 048
     Dates: start: 20031128, end: 20040617

REACTIONS (3)
  - DRUG INTERACTION [None]
  - KIDNEY SMALL [None]
  - RENAL FAILURE [None]
